FAERS Safety Report 17155428 (Version 1)
Quarter: 2019Q4

REPORT INFORMATION
  Report Type: Spontaneous
  Country: US (occurrence: US)
  Receive Date: 20191215
  Receipt Date: 20191215
  Transmission Date: 20200122
  Serious: No
  Sender: FDA-Public Use
  Company Number: US-ENDO PHARMACEUTICALS INC-2019-101207

PATIENT
  Age: 40 Year
  Sex: Male
  Weight: 86.17 kg

DRUGS (3)
  1. BICTEGRAVIR W/EMTRICITABINE/TENOFOVIR ALAFENA [Concomitant]
     Active Substance: BICTEGRAVIR\EMTRICITABINE\TENOFOVIR ALAFENAMIDE
     Indication: HIV INFECTION
  2. XIAFLEX [Suspect]
     Active Substance: COLLAGENASE CLOSTRIDIUM HISTOLYTICUM
     Indication: PEYRONIE^S DISEASE
     Dosage: UNK UNKNOWN, FIRST CYCLE: FIRST INJECTION
     Route: 026
     Dates: start: 201901
  3. XIAFLEX [Suspect]
     Active Substance: COLLAGENASE CLOSTRIDIUM HISTOLYTICUM
     Dosage: UNK UNKNOWN, FIRST CYCLE: SECOND INJECTION
     Route: 026
     Dates: start: 201901

REACTIONS (7)
  - Abdominal pain [Unknown]
  - Penile swelling [Not Recovered/Not Resolved]
  - Pain in extremity [Recovered/Resolved]
  - Blood blister [Not Recovered/Not Resolved]
  - Influenza like illness [Unknown]
  - Skin discolouration [Not Recovered/Not Resolved]
  - Penile haematoma [Unknown]

NARRATIVE: CASE EVENT DATE: 201901
